FAERS Safety Report 5056445-2 (Version None)
Quarter: 2006Q3

REPORT INFORMATION
  Report Type: 
  Country: None (occurrence: None)
  Receive Date: 20060717
  Receipt Date: 20060706
  Transmission Date: 20061208
  Serious: Yes (Hospitalization)
  Sender: FDA-Public Use
  Company Number: DE-2006-016784

PATIENT
  Age: 43 Year
  Sex: Female
  Weight: 79 kg

DRUGS (1)
  1. PETIBELLE 30 (DROSPIRENONE, ETHINYLESTRADIO) FILM TABLET [Suspect]
     Indication: CONTRACEPTION
     Dosage: 1 TAB(S), 21D/28D
     Dates: start: 20051001, end: 20060620

REACTIONS (9)
  - BLINDNESS UNILATERAL [None]
  - CARDIAC NEUROSIS [None]
  - CHEST PAIN [None]
  - DYSPNOEA [None]
  - HEADACHE [None]
  - PSYCHOSOMATIC DISEASE [None]
  - SENSATION OF FOREIGN BODY [None]
  - SPEECH DISORDER [None]
  - VISUAL DISTURBANCE [None]
